FAERS Safety Report 19302869 (Version 1)
Quarter: 2021Q2

REPORT INFORMATION
  Report Type: Spontaneous
  Country: FR (occurrence: FR)
  Receive Date: 20210525
  Receipt Date: 20210525
  Transmission Date: 20210717
  Serious: Yes (Other)
  Sender: FDA-Public Use
  Company Number: FR-TEVA-2021-FR-1914484

PATIENT
  Age: 29 Year
  Sex: Female

DRUGS (2)
  1. ASTRAZENECA COVID?19 VACCINE [Suspect]
     Active Substance: AZD-1222
     Indication: COVID-19 IMMUNISATION
     Dosage: UNIT DOSE: 1 DOSAGE FORM
     Route: 030
     Dates: start: 20210302, end: 20210302
  2. ISOTRETINOINE [Suspect]
     Active Substance: ISOTRETINOIN
     Indication: ACNE
     Dosage: UNIT DOSE: 35 MILLIGRAM
     Route: 048
     Dates: start: 202009, end: 20210407

REACTIONS (3)
  - Headache [Recovering/Resolving]
  - Influenza like illness [Recovered/Resolved]
  - Vision blurred [Recovered/Resolved]

NARRATIVE: CASE EVENT DATE: 20210302
